FAERS Safety Report 10216327 (Version 4)
Quarter: 2016Q1

REPORT INFORMATION
  Report Type: Spontaneous
  Country: US (occurrence: US)
  Receive Date: 20140604
  Receipt Date: 20160318
  Transmission Date: 20160525
  Serious: Yes (Other)
  Sender: FDA-Public Use
  Company Number: US-PFIZER INC-2014149703

PATIENT
  Age: 73 Year
  Sex: Female
  Weight: 69 kg

DRUGS (20)
  1. ALLERGY RELIEF-D [Concomitant]
     Active Substance: LORATADINE\PSEUDOEPHEDRINE SULFATE
     Dosage: 1 DF, 1X/DAY (EMPTY STOMACH WITH A GLASS OF WATER)
     Route: 048
  2. VELETRI [Concomitant]
     Active Substance: EPOPROSTENOL
     Dosage: 1.5 MG, UNK
     Route: 042
  3. LEVALBUTEROL. [Concomitant]
     Active Substance: LEVALBUTEROL
     Dosage: 0.5 ML, 4X/DAY (1.25 MG/0.5 ML SOLUTION FOR NEBULIZATION)
     Route: 055
     Dates: start: 20150727
  4. POTASSIUM CHLORIDE ER [Concomitant]
     Active Substance: POTASSIUM CHLORIDE
     Dosage: 40 MEQ, DAILY (WITH FOOD)
     Route: 048
     Dates: start: 20150921
  5. PREDNISONE. [Concomitant]
     Active Substance: PREDNISONE
     Dosage: UNK (1 TABLET ORALLY BID TODAY THEN 1  A DAY FOR 3 DAYS, ? A DAY UNTIL COMPLETED)
     Route: 048
     Dates: start: 20151217
  6. MAG-OXIDE [Concomitant]
     Dosage: 400 MG, 2X/DAY
     Dates: start: 20150405
  7. ALBUTEROL SULFATE. [Concomitant]
     Active Substance: ALBUTEROL SULFATE
     Dosage: 6 ML (1.25 MG/3 ML SOLUTION FOR NEBULISATION/3-4 TIMES EVERY DAY VIA NEBULIZER)
     Route: 055
     Dates: start: 20150730
  8. ALPRAZOLAM. [Concomitant]
     Active Substance: ALPRAZOLAM
     Indication: ANXIETY
     Dosage: 0.5 MG, AS NEEDED (TAKE 1 ORALLY AT HS)
     Route: 048
     Dates: start: 20150722
  9. HYDROCODONE BITARTRATE W/PARACETAMOL [Concomitant]
     Active Substance: ACETAMINOPHEN\HYDROCODONE BITARTRATE
     Dosage: 1 DF, AS NEEDED (HYDROCODONE 2.5 MG/ ACETAMINOPHEN 325 MG/ EVERY 4-6 HOURS)
     Route: 048
     Dates: start: 20150508
  10. WARFARIN [Concomitant]
     Active Substance: WARFARIN
     Dosage: 4 MG, DAILY
     Route: 048
     Dates: start: 20151125
  11. ALPRAZOLAM. [Concomitant]
     Active Substance: ALPRAZOLAM
     Dosage: 1.5 MG, AS NEEDED (1 MG TABLET/1.5 TABLET BY ORAL ROUTE AT HS  )
     Route: 048
     Dates: start: 20151104
  12. REVATIO [Suspect]
     Active Substance: SILDENAFIL CITRATE
     Indication: CHRONIC OBSTRUCTIVE PULMONARY DISEASE
     Dosage: 40 MG (2 TABLETS OF 20 MG), 3X/DAY
     Route: 048
     Dates: start: 20150821
  13. WARFARIN [Concomitant]
     Active Substance: WARFARIN
     Dosage: 1.5 MG, DAILY
     Route: 048
     Dates: start: 20150508
  14. PROMETHAZINE W/CODEINE [Concomitant]
     Active Substance: CODEINE\PROMETHAZINE
     Dosage: 5 ML, AS NEEDED (PROMETHAZINE 6.25 MG- CODEINE 10 MG/5 ML ; EVERY 6 HOURS/NOT EXCEEDED 30 ML IN 24)
     Route: 048
     Dates: start: 20151217
  15. LASIX [Concomitant]
     Active Substance: FUROSEMIDE
     Dosage: 20 MG, DAILY
     Route: 048
     Dates: start: 20150727
  16. SOMA [Concomitant]
     Active Substance: CARISOPRODOL
     Indication: MYALGIA
     Dosage: 250 MG, AS NEEDED (EVERY 6-8 HOURS)
     Route: 048
     Dates: start: 20140415
  17. REVATIO [Suspect]
     Active Substance: SILDENAFIL CITRATE
     Indication: PULMONARY HYPERTENSION
     Dosage: 40 MG (2 TABLETS OF 20 MG), 3X/DAY
     Route: 048
  18. DYAZIDE [Concomitant]
     Active Substance: HYDROCHLOROTHIAZIDE\TRIAMTERENE
     Indication: DIURETIC THERAPY
     Dosage: [HYDROCHLOROTHAZIDE 25MG/ TRIAMTERENE 37.5MG], DAILY
     Route: 048
     Dates: start: 20150323
  19. OMEPRAZOLE. [Concomitant]
     Active Substance: OMEPRAZOLE
     Indication: GASTRIC DISORDER
     Dosage: 20 MG, DAILY (BEFORE MEAL)
     Route: 048
  20. TRIAMTERENE AND HYDROCHLOROTHIAZID [Concomitant]
     Active Substance: HYDROCHLOROTHIAZIDE\TRIAMTERENE
     Dosage: 1 DF, DAILY (TRIAMTERENE 37.5 MG- HYDROCHLOROTHIAZIDE 25 MG)
     Route: 048
     Dates: start: 20150805

REACTIONS (5)
  - Hypoxia [Unknown]
  - Pancreatic carcinoma [Unknown]
  - Pancreatic disorder [Unknown]
  - Asthma [Unknown]
  - Product use issue [Not Recovered/Not Resolved]
